FAERS Safety Report 14380737 (Version 1)
Quarter: 2018Q1

REPORT INFORMATION
  Report Type: Spontaneous
  Country: US (occurrence: US)
  Receive Date: 20180112
  Receipt Date: 20180112
  Transmission Date: 20180509
  Serious: No
  Sender: FDA-Public Use
  Company Number: US-ALKERMES INC.-ALK-2017-004509

PATIENT
  Sex: Female

DRUGS (1)
  1. ARISTADA [Suspect]
     Active Substance: ARIPIPRAZOLE LAUROXIL
     Indication: PRODUCT USED FOR UNKNOWN INDICATION
     Dosage: 380 MG, UNK
     Route: 030
     Dates: start: 20170720

REACTIONS (4)
  - Drug abuse [Unknown]
  - Irritability [Unknown]
  - Agitation [Unknown]
  - Hostility [Unknown]

NARRATIVE: CASE EVENT DATE: 2017
